FAERS Safety Report 10042036 (Version 1)
Quarter: 2014Q1

REPORT INFORMATION
  Report Type: Report from Study
  Country: CN (occurrence: CN)
  Receive Date: 20140327
  Receipt Date: 20140327
  Transmission Date: 20141002
  Serious: Yes (Hospitalization)
  Sender: FDA-Public Use
  Company Number: PHHY2014CN035423

PATIENT
  Age: 71 Year
  Sex: Female
  Weight: 45.5 kg

DRUGS (4)
  1. INDACATEROL [Suspect]
     Indication: CHRONIC OBSTRUCTIVE PULMONARY DISEASE
  2. BUDESONIDE [Concomitant]
     Dosage: 2 ML, TID
     Dates: start: 201212, end: 20131106
  3. AMLODIPINE BESYLATE [Concomitant]
     Indication: HYPERTENSION
     Dosage: 5 MG, QD
     Dates: end: 20131106
  4. ACARBOSE [Concomitant]
     Indication: DIABETES MELLITUS
     Dosage: 30 MG, TID
     Dates: end: 20131106

REACTIONS (2)
  - Thyroid disorder [Recovering/Resolving]
  - Chronic obstructive pulmonary disease [Recovering/Resolving]
